FAERS Safety Report 6972674-2 (Version None)
Quarter: 2010Q3

REPORT INFORMATION
  Report Type: 
  Country: None (occurrence: None)
  Receive Date: 20100909
  Receipt Date: 20091123
  Transmission Date: 20110219
  Serious: No
  Sender: FDA-Public Use
  Company Number: US-KINGPHARMUSA00001-K200901472

PATIENT
  Age: 34 Year
  Sex: Female
  Weight: 49.887 kg

DRUGS (5)
  1. CYTOMEL [Suspect]
     Indication: HYPOTHYROIDISM
     Dosage: 5 MCG, QD
     Route: 048
     Dates: start: 20091111
  2. YASMIN [Concomitant]
     Dosage: UNK
  3. LEVOXYL [Concomitant]
     Indication: HYPOTHYROIDISM
     Dosage: UNK
  4. VITAMINS [Concomitant]
     Indication: SUPPLEMENTATION THERAPY
     Dosage: UNK
  5. RESTASIS [Concomitant]
     Dosage: UNK
     Route: 047

REACTIONS (3)
  - HYPERAESTHESIA [None]
  - PILOERECTION [None]
  - RASH [None]
